FAERS Safety Report 15533138 (Version 1)
Quarter: 2018Q4

REPORT INFORMATION
  Report Type: Spontaneous
  Country: US (occurrence: US)
  Receive Date: 20181019
  Receipt Date: 20181019
  Transmission Date: 20190205
  Serious: Yes (Hospitalization)
  Sender: FDA-Public Use
  Company Number: US-JNJFOC-20181014798

PATIENT
  Age: 66 Year
  Sex: Male
  Weight: 88.45 kg

DRUGS (12)
  1. ZYTIGA [Suspect]
     Active Substance: ABIRATERONE ACETATE
     Indication: PROSTATE CANCER
     Route: 048
     Dates: start: 201803
  2. PREDNISONE. [Suspect]
     Active Substance: PREDNISONE
     Indication: PROSTATE CANCER
     Route: 065
     Dates: start: 201803
  3. EDOXABAN [Concomitant]
     Active Substance: EDOXABAN TOSYLATE
     Indication: THROMBOSIS
     Route: 065
     Dates: start: 201808
  4. CARBOPLATIN. [Suspect]
     Active Substance: CARBOPLATIN
     Indication: NEOPLASM
     Route: 065
     Dates: start: 20180917
  5. MELATONIN [Concomitant]
     Active Substance: MELATONIN
     Indication: SLEEP DISORDER THERAPY
     Route: 065
     Dates: start: 201803
  6. MIRTAZAPINE. [Concomitant]
     Active Substance: MIRTAZAPINE
     Indication: SLEEP DISORDER THERAPY
     Route: 065
     Dates: start: 201808
  7. MIRTAZAPINE. [Concomitant]
     Active Substance: MIRTAZAPINE
     Indication: DECREASED APPETITE
     Route: 065
     Dates: start: 201808
  8. GEMCITABINE [Suspect]
     Active Substance: GEMCITABINE\GEMCITABINE HYDROCHLORIDE
     Indication: NEOPLASM
     Route: 065
     Dates: start: 20180917
  9. CARBIDOPA. [Concomitant]
     Active Substance: CARBIDOPA
     Indication: PARKINSON^S DISEASE
     Route: 065
     Dates: start: 201806
  10. MORPHINE [Concomitant]
     Active Substance: MORPHINE
     Indication: BLADDER PAIN
     Route: 065
     Dates: start: 201806
  11. HYDROCODONE [Concomitant]
     Active Substance: HYDROCODONE
     Indication: PAIN MANAGEMENT
     Route: 065
     Dates: start: 201803
  12. FERROUS SULFATE. [Concomitant]
     Active Substance: FERROUS SULFATE
     Indication: MINERAL SUPPLEMENTATION
     Route: 065
     Dates: start: 201808

REACTIONS (6)
  - Bladder cancer [Not Recovered/Not Resolved]
  - Red blood cell count decreased [Unknown]
  - Nausea [Unknown]
  - Abnormal loss of weight [Not Recovered/Not Resolved]
  - Gastrointestinal neoplasm [Unknown]
  - Asthenia [Not Recovered/Not Resolved]

NARRATIVE: CASE EVENT DATE: 2018
